FAERS Safety Report 24084009 (Version 1)
Quarter: 2024Q3

REPORT INFORMATION
  Report Type: Spontaneous
  Country: SE (occurrence: SE)
  Receive Date: 20240712
  Receipt Date: 20240712
  Transmission Date: 20241016
  Serious: Yes (Other)
  Sender: ROCHE
  Company Number: None

PATIENT
  Age: 49 Year
  Sex: Male

DRUGS (13)
  1. AVASTIN [Suspect]
     Active Substance: BEVACIZUMAB
     Indication: Radiation oedema
     Dosage: 15 MG/SQUARE METER (1230 MG) EVERY THREE WEEKS
     Route: 042
     Dates: start: 20240226, end: 20240515
  2. LEVETIRACETAM ORION [Concomitant]
     Dosage: 2 TABL 2 GGR/DAG
     Route: 048
     Dates: start: 20240205
  3. BETAPRED [Concomitant]
     Active Substance: BETAMETHASONE SODIUM PHOSPHATE
     Dosage: 4-14 TABL DAGLIGEN, VARIERAR UNDER PERIODEN.
     Route: 048
     Dates: start: 20231030
  4. OXYCONTIN [Concomitant]
     Active Substance: OXYCODONE HYDROCHLORIDE
     Dosage: 1-2 TABL 2 GAGNER PER DAG. DOSOKNING 240520
     Route: 048
     Dates: start: 20240507
  5. MIRABEGRON [Concomitant]
     Active Substance: MIRABEGRON
     Dosage: 1 TABL/DAG
     Route: 048
     Dates: start: 20240212
  6. Alprazolam Krka d.d. [Concomitant]
     Dosage: 1 TABLETT  1GANG/DAG
     Route: 048
     Dates: start: 20240214
  7. IMOVANE [Concomitant]
     Active Substance: ZOPICLONE
     Dosage: 1 TABL 1 GANG PER DAG
     Route: 048
     Dates: start: 20231015
  8. FRAGMIN [Concomitant]
     Active Substance: DALTEPARIN SODIUM
     Dosage: 1 INJ 2 GGRA/DAG
     Route: 058
     Dates: start: 20240514
  9. SERTRALINE [Concomitant]
     Active Substance: SERTRALINE HYDROCHLORIDE
     Dosage: 1 TABL DAGL
     Route: 048
  10. CANDESARSTAD [Concomitant]
     Dosage: 1 TABL 1 GANG/DAG.
     Route: 048
     Dates: start: 20240409
  11. ESOMEPRAZOLE [Concomitant]
     Active Substance: ESOMEPRAZOLE
     Dosage: 1 TABL 2 GGR/DAG
     Route: 048
     Dates: start: 20240408
  12. PROPIOMAZINE [Concomitant]
     Active Substance: PROPIOMAZINE
     Dosage: 2 TABL 1 GANG/DAG
     Route: 048
  13. MIRTAZAPINE [Concomitant]
     Active Substance: MIRTAZAPINE
     Dosage: 1 TABL DAGLIGEN
     Route: 048

REACTIONS (3)
  - Wound necrosis [Not Recovered/Not Resolved]
  - Skin necrosis [Recovering/Resolving]
  - Deep vein thrombosis [Recovering/Resolving]

NARRATIVE: CASE EVENT DATE: 20240423
